FAERS Safety Report 5169259-X (Version None)
Quarter: 2006Q4

REPORT INFORMATION
  Report Type: 
  Country: None (occurrence: None)
  Receive Date: 20061127
  Receipt Date: 20061124
  Transmission Date: 20070319
  Serious: Yes (Death)
  Sender: FDA-Public Use
  Company Number: 229549

PATIENT
  Age: 63 Year
  Sex: Female

DRUGS (9)
  1. MABTHERA(RITUXIMAB) CONC FOR SOLUTION FOR INFUSION [Suspect]
     Indication: LYMPHOMA
     Dosage: 250 MG/M2, UNK, UNK
     Dates: start: 20060330, end: 20060330
  2. ZEVALIN [Suspect]
     Indication: LYMPHOMA
     Dosage: 15 MBQ/KG, UNK, INTRAVENOUS
     Route: 042
     Dates: start: 20060330, end: 20060330
  3. YTRACIS(YTTRIUM-90) [Suspect]
     Indication: LYMPHOMA
     Dosage: UNK, UNK, UNK
     Dates: start: 20060330, end: 20060330
  4. ZEVALIN [Suspect]
     Indication: LYMPHOMA
     Dosage: UNK, UNK, UNK
  5. FORTECORTIN (DEXAMETHASONE) [Concomitant]
  6. AMPHO-MORONAL (AMPHOTERICIAN B) [Concomitant]
  7. COSAAR PLUS (HYDROCHLOROTHIAZIDE, LOSARTAN POTASSIUM) [Concomitant]
  8. PANTOPRAZOLE SODIUM [Concomitant]
  9. VITAMIN B (VITAMIN B NOS) [Concomitant]

REACTIONS (6)
  - NEUTROPENIA [None]
  - PANCYTOPENIA [None]
  - PNEUMONIA [None]
  - SEPSIS [None]
  - SHIFT TO THE LEFT [None]
  - THERAPY NON-RESPONDER [None]
